FAERS Safety Report 4620998-6 (Version None)
Quarter: 2005Q2

REPORT INFORMATION
  Report Type: 
  Country: None (occurrence: None)
  Receive Date: 20050317
  Receipt Date: 20041222
  Transmission Date: 20051028
  Serious: Yes (Other)
  Sender: FDA-Public Use
  Company Number: 2004118287

PATIENT
  Age: 18 Year
  Sex: Female

DRUGS (2)
  1. VORICONAZOLE (VORICONAZOLE) [Suspect]
     Indication: ILL-DEFINED DISORDER
     Dates: start: 20041206
  2. TRETINOIN [Suspect]
     Indication: ILL-DEFINED DISORDER
     Dates: start: 20041208, end: 20041210

REACTIONS (2)
  - DRUG INTERACTION [None]
  - RETINOIC ACID SYNDROME [None]
